FAERS Safety Report 23742006 (Version 1)
Quarter: 2024Q2

REPORT INFORMATION
  Report Type: Spontaneous
  Country: US (occurrence: US)
  Receive Date: 20240415
  Receipt Date: 20240415
  Transmission Date: 20240716
  Serious: Yes (Other)
  Sender: FDA-Public Use
  Company Number: US-MYLANLABS-2024M1031984

PATIENT
  Age: 29 Year
  Sex: Male

DRUGS (2)
  1. ANASTROZOLE [Suspect]
     Active Substance: ANASTROZOLE
     Indication: Muscle building therapy
     Dosage: UNK; INJECTION
     Route: 065
  2. CLOMIPHENE [Suspect]
     Active Substance: CLOMIPHENE
     Indication: Muscle building therapy
     Dosage: UNK
     Route: 065

REACTIONS (3)
  - Toxic cardiomyopathy [Unknown]
  - Secondary hypogonadism [Unknown]
  - Off label use [Unknown]
